FAERS Safety Report 7405932-8 (Version None)
Quarter: 2011Q2

REPORT INFORMATION
  Report Type: 
  Country: None (occurrence: None)
  Receive Date: 20110411
  Receipt Date: 20110404
  Transmission Date: 20111010
  Serious: Yes (Hospitalization)
  Sender: FDA-Public Use
  Company Number: US-ELI_LILLY_AND_COMPANY-US201101006604

PATIENT
  Sex: Male

DRUGS (33)
  1. EX-LAX [Concomitant]
     Indication: CONSTIPATION
     Route: 048
     Dates: start: 20101026
  2. METFORMIN HCL [Concomitant]
     Indication: DIABETES MELLITUS
     Route: 048
     Dates: start: 20010101
  3. MARINOL [Concomitant]
     Indication: DECREASED APPETITE
     Route: 048
     Dates: start: 20100907
  4. MIRALAX [Concomitant]
     Indication: CONSTIPATION
     Route: 048
     Dates: start: 20100920
  5. CIPROFLOXACIN [Concomitant]
     Dates: start: 20110110, end: 20110120
  6. METRONIDAZOLE [Concomitant]
     Dates: start: 20110110, end: 20110120
  7. ALOXI [Concomitant]
     Indication: PREMEDICATION
     Route: 042
     Dates: start: 20100930
  8. HYDROCHLOROTHIAZIDE [Concomitant]
     Indication: HYPERTENSION
     Route: 048
     Dates: start: 20050101
  9. GEMCITABINE HYDROCHLORIDE [Suspect]
     Indication: PANCREATIC CARCINOMA
     Dosage: 1000 MG/M2, UNKNOWN
     Dates: start: 20100930, end: 20101228
  10. AVALIDE [Concomitant]
     Indication: HYPERTENSION
     Route: 048
     Dates: start: 20050101
  11. MILK OF MAGNESIUM [Concomitant]
     Indication: CONSTIPATION
     Route: 048
     Dates: start: 20100913
  12. SENOKOT [Concomitant]
     Indication: CONSTIPATION
     Route: 048
     Dates: start: 20100920
  13. LASIX [Concomitant]
     Indication: OEDEMA PERIPHERAL
     Route: 048
     Dates: start: 20101228
  14. POTASSIUM CHLORIDE [Concomitant]
     Indication: PROPHYLAXIS
     Route: 048
     Dates: start: 20101228
  15. PACLITAXEL [Suspect]
     Indication: PANCREATIC CARCINOMA
     Dosage: 125 MG/M2, WEEKLY (1/W)
     Dates: start: 20100930, end: 20101228
  16. ASPIRIN [Concomitant]
     Indication: CORONARY ARTERY DISEASE
     Route: 048
     Dates: start: 20010101
  17. EFFEXOR [Concomitant]
     Indication: DEPRESSION
     Route: 048
     Dates: start: 20100824
  18. CARVEDILOL [Concomitant]
     Indication: CORONARY ARTERY DISEASE
     Route: 048
     Dates: start: 20060101
  19. IMODIUM [Concomitant]
     Indication: DIARRHOEA
     Route: 048
     Dates: start: 20101018
  20. NORCO [Concomitant]
     Indication: PAIN
     Route: 048
     Dates: start: 20101228
  21. DECADRON [Concomitant]
     Indication: PREMEDICATION
     Route: 042
     Dates: start: 20100930
  22. COQ10 [Concomitant]
     Indication: CORONARY ARTERY DISEASE
     Route: 048
     Dates: start: 20050101
  23. CENTRUM SILVER [Concomitant]
     Indication: PROPHYLAXIS
     Dates: start: 20000101
  24. METOPROLOL TARTRATE [Concomitant]
     Indication: HYPERTENSION
     Route: 048
     Dates: start: 20050101
  25. APIDRA [Concomitant]
     Indication: DIABETES MELLITUS
     Dosage: UNK, AS NEEDED
     Route: 058
     Dates: start: 20010101
  26. CLOBETASOL PROPIONATE [Concomitant]
     Indication: RASH MACULO-PAPULAR
     Route: 061
     Dates: start: 20101120
  27. OXYCODONE [Concomitant]
     Indication: ABDOMINAL PAIN
     Route: 048
     Dates: start: 20100824
  28. COMPAZINE [Concomitant]
     Indication: NAUSEA
     Route: 048
     Dates: start: 20100930
  29. MAGNESIUM CITRATE [Concomitant]
     Indication: CONSTIPATION
     Route: 048
     Dates: start: 20100920
  30. OXYCONTIN [Concomitant]
     Indication: ABDOMINAL PAIN
     Route: 048
     Dates: start: 20100824
  31. PRAVASTATIN [Concomitant]
     Indication: CORONARY ARTERY DISEASE
     Route: 001
     Dates: start: 20050101
  32. LANTUS [Concomitant]
     Indication: DIABETES MELLITUS
     Route: 058
     Dates: start: 20010101
  33. DOXYCYCLINE [Concomitant]
     Indication: RASH
     Dates: start: 20110104, end: 20110110

REACTIONS (1)
  - HEPATIC FAILURE [None]
